FAERS Safety Report 8564611-4 (Version None)
Quarter: 2012Q3

REPORT INFORMATION
  Report Type: 
  Country: None (occurrence: None)
  Receive Date: 20120803
  Receipt Date: 20120801
  Transmission Date: 20120928
  Serious: Yes (Death)
  Sender: FDA-Public Use
  Company Number: US-PFIZER INC-2012188206

PATIENT
  Sex: Male

DRUGS (3)
  1. XALKORI [Suspect]
     Indication: LUNG NEOPLASM MALIGNANT
     Dosage: 250 MG, 2X/DAY, TAKE 1 CAPSULE
     Route: 048
     Dates: start: 20120703
  2. XALKORI [Suspect]
     Indication: METASTASES TO ADRENALS
  3. ONDANSETRON [Suspect]
     Dosage: 8 MG, UNK

REACTIONS (1)
  - DEATH [None]
